FAERS Safety Report 8339780-1 (Version None)
Quarter: 2012Q2

REPORT INFORMATION
  Report Type: 
  Country: None (occurrence: None)
  Receive Date: 20120507
  Receipt Date: 20120425
  Transmission Date: 20120825
  Serious: Yes (Hospitalization)
  Sender: FDA-Public Use
  Company Number: US-CELGENEUS-163-21880-12043072

PATIENT
  Sex: Male

DRUGS (34)
  1. FUROSEMIDE [Concomitant]
     Dosage: 20 MILLIGRAM
     Route: 048
     Dates: end: 20120323
  2. LIPITOR [Concomitant]
     Dosage: 40 MILLIGRAM
     Route: 048
     Dates: start: 20120209
  3. METAMUCIL-2 [Concomitant]
     Dosage: 160'S
     Route: 048
     Dates: start: 19900101
  4. VOLTAREN [Concomitant]
     Dosage: 3X10GM
     Route: 065
  5. LYRICA [Concomitant]
     Dosage: 75 MILLIGRAM
     Route: 048
     Dates: start: 20120321
  6. NOVOLOG [Concomitant]
     Dosage: 5X3ML
     Route: 050
     Dates: start: 20120228
  7. ISOSORBIDE MONONITRATE [Concomitant]
     Dosage: 60
     Route: 065
     Dates: start: 20120221
  8. AZITHROMYCIN [Concomitant]
     Dosage: 250 MILLIGRAM
     Route: 048
     Dates: start: 20120213
  9. LIPITOR [Concomitant]
     Dosage: 40 MILLIGRAM
     Route: 048
     Dates: start: 20110513
  10. OYSCO 500/D [Concomitant]
     Dosage: 500 MILLIGRAM
     Route: 048
     Dates: start: 20111111, end: 20111121
  11. DEXAMETHASONE [Concomitant]
     Dosage: 4 MILLIGRAM
     Route: 048
     Dates: start: 20120308
  12. SENNAPLUS [Concomitant]
     Dosage: 8.6/50MG
     Route: 048
  13. REVLIMID [Suspect]
     Indication: MULTIPLE MYELOMA
     Dosage: 25 MILLIGRAM
     Route: 048
     Dates: start: 20110520
  14. VITAMIN B6 [Concomitant]
     Dosage: 50 MILLIGRAM
     Route: 048
     Dates: start: 20120425
  15. FUROSEMIDE [Concomitant]
     Dosage: 20 MILLIGRAM
     Route: 048
     Dates: start: 20120405
  16. RAMIPRIL [Concomitant]
     Dosage: 10 MILLIGRAM
     Route: 048
     Dates: start: 20111109
  17. METFORMIN HCL [Concomitant]
     Dosage: 1000 MILLIGRAM
     Route: 048
     Dates: start: 20120210
  18. METFORMIN HCL [Concomitant]
     Dosage: 1000 MILLIGRAM
     Route: 048
     Dates: start: 20110326
  19. METFORMIN HCL [Concomitant]
     Dosage: 500 MILLIGRAM
     Route: 048
  20. DULEEK-MET [Concomitant]
     Route: 048
     Dates: start: 20110305
  21. CARVEDILOL [Concomitant]
     Dosage: 12.5 MILLIGRAM
     Route: 048
     Dates: start: 20110224
  22. ASPIRIN [Concomitant]
     Dosage: 81 MILLIGRAM
     Route: 048
  23. CITALOPRAM HYDROBROMIDE [Concomitant]
     Dosage: 20 MILLIGRAM
     Route: 048
     Dates: start: 20120319
  24. RAMIPRIL [Concomitant]
     Dosage: 5 MILLIGRAM
     Route: 048
     Dates: start: 20120228
  25. RAMIPRIL [Concomitant]
     Dosage: 10 MILLIGRAM
     Route: 048
     Dates: start: 20110513
  26. TAMSULOSIN HCL [Concomitant]
     Dosage: .4 MILLIGRAM
     Route: 048
     Dates: start: 20110508
  27. MIRALAX [Concomitant]
     Dosage: 3350NF
     Route: 048
  28. COLACE [Concomitant]
     Dosage: 100 MILLIGRAM
     Route: 048
  29. HYDROCODONE BITARTRATE AND ACETAMINOPHEN [Concomitant]
     Dosage: 10MG/32
     Route: 065
     Dates: start: 20110506
  30. ISOSORBIDE MONONITRATE [Concomitant]
     Dosage: 60
     Route: 065
     Dates: start: 20110513, end: 20111209
  31. LANTUS [Concomitant]
     Dosage: 10 MILLILITER
     Route: 050
     Dates: start: 20110810
  32. LYRICA [Concomitant]
     Dosage: 50 MILLIGRAM
     Route: 048
     Dates: start: 20110306
  33. TAMSULOSIN HCL [Concomitant]
     Dosage: .4 MILLIGRAM
     Route: 048
     Dates: start: 20110508
  34. HUMALOG KWIKPEN [Concomitant]
     Dosage: 100/ML
     Route: 050
     Dates: start: 20110627

REACTIONS (1)
  - COLON CANCER [None]
